FAERS Safety Report 5196427-3 (Version None)
Quarter: 2006Q4

REPORT INFORMATION
  Report Type: 
  Country: None (occurrence: None)
  Receive Date: 20061226
  Receipt Date: 20061212
  Transmission Date: 20070319
  Serious: Yes (Life-Threatening, Other)
  Sender: FDA-Public Use
  Company Number: 2006BH015036

PATIENT
  Age: 65 Year
  Sex: Female
  Weight: 59.9 kg

DRUGS (1)
  1. DEXAMETHASONE TAB [Suspect]
     Dosage: 8 MG IV
     Route: 042

REACTIONS (9)
  - BLOOD CATECHOLAMINES INCREASED [None]
  - BUTTOCK PAIN [None]
  - DYSPNOEA [None]
  - HEADACHE [None]
  - HYPERTENSION [None]
  - MYOCARDIAL ISCHAEMIA [None]
  - PAIN [None]
  - PAIN IN EXTREMITY [None]
  - TACHYCARDIA [None]
